FAERS Safety Report 5754314-3 (Version None)
Quarter: 2008Q2

REPORT INFORMATION
  Report Type: 
  Country: None (occurrence: None)
  Receive Date: 20080530
  Receipt Date: 20080519
  Transmission Date: 20081010
  Serious: Yes (Other)
  Sender: FDA-Public Use
  Company Number: GB-PFIZER INC-2008000233

PATIENT
  Age: 41 Year
  Sex: Female

DRUGS (4)
  1. CHANTIX [Suspect]
     Indication: SMOKING CESSATION THERAPY
     Route: 048
     Dates: start: 20071116, end: 20071121
  2. BRICANYL [Concomitant]
     Indication: ASTHMA
     Route: 055
  3. DYDROGESTERONE TAB [Concomitant]
     Indication: HORMONE REPLACEMENT THERAPY
     Route: 048
  4. PULMICORT [Concomitant]
     Indication: ASTHMA
     Route: 055

REACTIONS (2)
  - SUICIDAL IDEATION [None]
  - TEARFULNESS [None]
